FAERS Safety Report 4503623-4 (Version None)
Quarter: 2004Q3

REPORT INFORMATION
  Report Type: 
  Country: None (occurrence: None)
  Receive Date: 20040928
  Receipt Date: 20040611
  Transmission Date: 20050211
  Serious: No
  Sender: FDA-Public Use
  Company Number: 04P-163-0263601-00

PATIENT
  Sex: Female
  Weight: 86.1834 kg

DRUGS (3)
  1. HUMIRA [Suspect]
     Indication: RHEUMATOID ARTHRITIS
     Dosage: 40 MG, 1 IN 2 WK, SUBCUTANEOUS
     Route: 058
     Dates: start: 20040201
  2. METHOTREXATE SODIUM [Concomitant]
  3. TYLENOL SINUS MEDICATION [Concomitant]

REACTIONS (7)
  - FEELING ABNORMAL [None]
  - HEADACHE [None]
  - PANIC ATTACK [None]
  - SINUSITIS [None]
  - TUNNEL VISION [None]
  - VISUAL DISTURBANCE [None]
  - VISUAL FIELD DEFECT [None]
